FAERS Safety Report 5394666-X (Version None)
Quarter: 2007Q3

REPORT INFORMATION
  Report Type: 
  Country: None (occurrence: None)
  Receive Date: 20070723
  Receipt Date: 20070711
  Transmission Date: 20080115
  Serious: Yes (Hospitalization)
  Sender: FDA-Public Use
  Company Number: FR-PFIZER INC-2005158869

PATIENT
  Sex: Male
  Weight: 62 kg

DRUGS (5)
  1. SU-011,248 [Suspect]
     Indication: RENAL CELL CARCINOMA STAGE UNSPECIFIED
     Route: 048
     Dates: start: 20051104, end: 20051116
  2. AMLODIPINE [Concomitant]
     Route: 048
  3. OMEPRAZOLE [Concomitant]
     Route: 048
  4. ZOLEDRONIC ACID [Concomitant]
     Route: 042
  5. METOCLOPRAMIDE [Concomitant]
     Route: 048

REACTIONS (2)
  - ASTHENIA [None]
  - FACE OEDEMA [None]
